FAERS Safety Report 7075625-8 (Version None)
Quarter: 2010Q4

REPORT INFORMATION
  Report Type: 
  Country: None (occurrence: None)
  Receive Date: 20101030
  Receipt Date: 20101021
  Transmission Date: 20110411
  Serious: No
  Sender: FDA-Public Use
  Company Number: US-WYE-H18309810

PATIENT
  Age: 40 Year
  Sex: Female

DRUGS (1)
  1. PRISTIQ [Suspect]
     Indication: MAJOR DEPRESSION
     Dosage: UNKNOWN
     Route: 048

REACTIONS (4)
  - AGITATION [None]
  - ANGER [None]
  - DECREASED APPETITE [None]
  - IRRITABILITY [None]
